FAERS Safety Report 7148009-1 (Version None)
Quarter: 2010Q4

REPORT INFORMATION
  Report Type: 
  Country: None (occurrence: None)
  Receive Date: 20101209
  Receipt Date: 20101129
  Transmission Date: 20110411
  Serious: Yes (Other)
  Sender: FDA-Public Use
  Company Number: AU-JNJFOC-20101200552

PATIENT
  Sex: Male

DRUGS (3)
  1. REMICADE [Suspect]
     Indication: PRODUCT USED FOR UNKNOWN INDICATION
     Route: 042
  2. REMICADE [Suspect]
     Route: 042
  3. HYDROCORTISONE [Concomitant]
     Indication: PREMEDICATION

REACTIONS (9)
  - EYE SWELLING [None]
  - INFUSION RELATED REACTION [None]
  - LIP SWELLING [None]
  - NAUSEA [None]
  - RASH PRURITIC [None]
  - RETCHING [None]
  - SURGERY [None]
  - SWELLING FACE [None]
  - THROAT IRRITATION [None]
